FAERS Safety Report 5736860-1 (Version None)
Quarter: 2008Q2

REPORT INFORMATION
  Report Type: 
  Country: None (occurrence: None)
  Receive Date: 20080508
  Receipt Date: 20080430
  Transmission Date: 20081010
  Serious: Yes (Other)
  Sender: FDA-Public Use
  Company Number: 2008-00002-126

PATIENT
  Sex: Female
  Weight: 53.2 kg

DRUGS (3)
  1. RIBAVIRIN [Suspect]
     Indication: HEPATITIS C
     Dosage: BID ORAL
     Route: 048
  2. PEG-IFN A-2B [Concomitant]
  3. RIBAVIRIN [Concomitant]

REACTIONS (1)
  - HYPERURICAEMIA [None]
